FAERS Safety Report 15653348 (Version 2)
Quarter: 2018Q4

REPORT INFORMATION
  Report Type: Report from Study
  Country: None (occurrence: US)
  Receive Date: 20181124
  Receipt Date: 20181207
  Transmission Date: 20190205
  Serious: Yes (Hospitalization, Other)
  Sender: FDA-Public Use
  Company Number: US-ABBVIE-18S-163-2563007-00

PATIENT
  Age: 68 Year
  Sex: Female
  Weight: 62.65 kg

DRUGS (5)
  1. METHOTREXATE. [Suspect]
     Active Substance: METHOTREXATE
     Indication: RHEUMATOID ARTHRITIS
     Route: 065
     Dates: end: 2017
  2. FISH OIL [Concomitant]
     Active Substance: FISH OIL
     Indication: PRODUCT USED FOR UNKNOWN INDICATION
  3. SYNTHROID [Suspect]
     Active Substance: LEVOTHYROXINE SODIUM
     Indication: HYPOTHYROIDISM
     Route: 048
     Dates: start: 2006
  4. NIFEDIPINE. [Concomitant]
     Active Substance: NIFEDIPINE
     Indication: RAYNAUD^S PHENOMENON
  5. FOLIC ACID. [Concomitant]
     Active Substance: FOLIC ACID
     Indication: PRODUCT USED FOR UNKNOWN INDICATION

REACTIONS (18)
  - Septic shock [Recovered/Resolved]
  - Infection [Recovered/Resolved]
  - Blood calcium increased [Recovered/Resolved]
  - Pyrexia [Recovered/Resolved]
  - Sarcoma [Recovering/Resolving]
  - Full blood count decreased [Recovered/Resolved]
  - Hypotension [Recovered/Resolved]
  - Lethargy [Recovered/Resolved]
  - Abscess limb [Recovering/Resolving]
  - Procedural pain [Recovered/Resolved]
  - Nephrolithiasis [Recovered/Resolved]
  - Staphylococcal infection [Unknown]
  - Osteomyelitis [Unknown]
  - Staphylococcal infection [Recovered/Resolved]
  - Liposarcoma [Recovering/Resolving]
  - Parathyroid tumour benign [Recovered/Resolved]
  - Headache [Recovered/Resolved]
  - Skin infection [Recovering/Resolving]

NARRATIVE: CASE EVENT DATE: 20170910
